FAERS Safety Report 19950817 (Version 2)
Quarter: 2021Q4

REPORT INFORMATION
  Report Type: Report from Study
  Country: FR (occurrence: FR)
  Receive Date: 20211013
  Receipt Date: 20211130
  Transmission Date: 20220303
  Serious: Yes (Other)
  Sender: FDA-Public Use
  Company Number: FR-GLAXOSMITHKLINE-FR2021EME132098

PATIENT
  Age: 75 Year
  Sex: Female
  Weight: 96 kg

DRUGS (10)
  1. ALBUTEROL [Suspect]
     Active Substance: ALBUTEROL
     Indication: Congenital myasthenic syndrome
     Dosage: 6 MILLIGRAM, QD (2 MG, TID (2 MG MORNING, NOON, EVENING))
     Route: 065
     Dates: start: 20210323
  2. ALBUTEROL [Suspect]
     Active Substance: ALBUTEROL
     Dosage: 6 MILLIGRAM, QD (2 MG, TID (2 MG MORNING, NOON, EVENING))
     Route: 048
     Dates: start: 20190129, end: 20201006
  3. ALBUTEROL [Suspect]
     Active Substance: ALBUTEROL
     Dosage: 6 MILLIGRAM, QD (2 MG, TID (2 MG MORNING, NOON, EVENING))
     Route: 048
     Dates: start: 20210525
  4. ALBUTEROL [Suspect]
     Active Substance: ALBUTEROL
     Dosage: 6 MILLIGRAM, QD (2 MG, TID (2 MG MORNING, NOON, EVENING))
     Route: 048
     Dates: start: 201803, end: 20201006
  5. HYDROCHLOROTHIAZIDE\IRBESARTAN [Suspect]
     Active Substance: HYDROCHLOROTHIAZIDE\IRBESARTAN
     Indication: Hypertension
     Dosage: 150 MILLIGRAM, QD (150 MG, QD)
     Route: 048
     Dates: start: 201712
  6. HYDROCHLOROTHIAZIDE\IRBESARTAN [Suspect]
     Active Substance: HYDROCHLOROTHIAZIDE\IRBESARTAN
     Dosage: 150 MILLIGRAM, QD
     Route: 048
     Dates: start: 2010
  7. PANTOPRAZOLE [Suspect]
     Active Substance: PANTOPRAZOLE
     Indication: Gastritis
     Dosage: 20 MILLIGRAM, QD (20 MG, QD (EVENING))
     Route: 048
     Dates: start: 201712
  8. PANTOPRAZOLE [Suspect]
     Active Substance: PANTOPRAZOLE
     Indication: Hiatus hernia
     Dosage: 20 MG, QD (EVENING)
     Route: 048
     Dates: start: 2010
  9. INEXIUM                            /01479302/ [Concomitant]
     Indication: Product used for unknown indication
     Dosage: 20 MILLIGRAM (20 MG)
  10. LEVOTHYROXINE [Concomitant]
     Active Substance: LEVOTHYROXINE
     Indication: Product used for unknown indication
     Dosage: 12.5 MICROGRAM (12.5 UG)

REACTIONS (5)
  - Atrial fibrillation [Not Recovered/Not Resolved]
  - Arrhythmia [Not Recovered/Not Resolved]
  - Left atrial dilatation [Not Recovered/Not Resolved]
  - Chest pain [Recovering/Resolving]
  - Palpitations [Recovering/Resolving]

NARRATIVE: CASE EVENT DATE: 20201006
